FAERS Safety Report 14559549 (Version 1)
Quarter: 2018Q1

REPORT INFORMATION
  Report Type: Spontaneous
  Country: US (occurrence: US)
  Receive Date: 20180221
  Receipt Date: 20180221
  Transmission Date: 20180509
  Serious: No
  Sender: FDA-Public Use
  Company Number: US-PFIZER INC-2018070327

PATIENT
  Age: 3 Year
  Sex: Female

DRUGS (1)
  1. PREMARIN [Suspect]
     Active Substance: ESTROGENS, CONJUGATED
     Indication: VULVOVAGINAL ADHESION
     Dosage: UNK

REACTIONS (3)
  - Breast enlargement [Unknown]
  - Hair growth abnormal [Unknown]
  - Product use issue [Unknown]
